FAERS Safety Report 6065559-X (Version None)
Quarter: 2009Q1

REPORT INFORMATION
  Report Type: 
  Country: None (occurrence: None)
  Receive Date: 20090204
  Receipt Date: 20090202
  Transmission Date: 20090719
  Serious: Yes (Life-Threatening, Hospitalization)
  Sender: FDA-Public Use
  Company Number: BR-B.I. PHARMACEUTICALS,INC./RIDGEFIELD-2009-BR-00106BR

PATIENT
  Age: 70 Year
  Sex: Male

DRUGS (3)
  1. ATENSINA [Suspect]
     Indication: HYPERTENSION
     Dosage: .6MG
     Route: 048
     Dates: start: 20090201, end: 20090202
  2. MICARDIS [Suspect]
     Indication: HYPERTENSION
     Dosage: 160MG
     Route: 048
     Dates: start: 20090201, end: 20090202
  3. ATENOLOL [Concomitant]
     Indication: HYPERTENSION

REACTIONS (2)
  - ISCHAEMIA [None]
  - OVERDOSE [None]
